FAERS Safety Report 18675645 (Version 2)
Quarter: 2021Q1

REPORT INFORMATION
  Report Type: Spontaneous
  Country: US (occurrence: US)
  Receive Date: 20201229
  Receipt Date: 20210106
  Transmission Date: 20210419
  Serious: Yes (Other)
  Sender: FDA-Public Use
  Company Number: US-PFIZER INC-2020507642

PATIENT
  Age: 42 Year
  Sex: Male

DRUGS (4)
  1. MITOXANTRONE [Concomitant]
     Active Substance: MITOXANTRONE HYDROCHLORIDE
     Indication: ACUTE MONOCYTIC LEUKAEMIA
     Dosage: 10 G/M2 (G/M2)
     Dates: start: 201712
  2. CLADRIBINE. [Concomitant]
     Active Substance: CLADRIBINE
     Indication: ACUTE MONOCYTIC LEUKAEMIA
     Dosage: 5 G/M2 (G/M2)
     Dates: start: 201712
  3. FILGRASTIM [Suspect]
     Active Substance: FILGRASTIM
     Indication: ACUTE MONOCYTIC LEUKAEMIA
     Dosage: UNK
     Dates: start: 201712
  4. CYTARABINE. [Concomitant]
     Active Substance: CYTARABINE
     Indication: ACUTE MONOCYTIC LEUKAEMIA
     Dosage: 2 G/M2 (G/M2)
     Dates: start: 201712

REACTIONS (3)
  - Disease progression [Unknown]
  - Off label use [Unknown]
  - Diplopia [Recovered/Resolved]
